FAERS Safety Report 7771172-6 (Version None)
Quarter: 2011Q3

REPORT INFORMATION
  Report Type: 
  Country: None (occurrence: None)
  Receive Date: 20110922
  Receipt Date: 20110316
  Transmission Date: 20111222
  Serious: No
  Sender: FDA-Public Use
  Company Number: US-ASTRAZENECA-2011SE14947

PATIENT
  Age: 45 Year
  Sex: Male
  Weight: 86.2 kg

DRUGS (4)
  1. SEROQUEL [Suspect]
     Indication: BIPOLAR DISORDER
     Route: 048
     Dates: start: 20050101, end: 20110307
  2. SEROQUEL [Suspect]
     Indication: SLEEP DISORDER
     Route: 048
     Dates: start: 20050101, end: 20110307
  3. SEROQUEL [Suspect]
     Indication: ANXIETY
     Route: 048
     Dates: start: 20050101, end: 20110307
  4. COREG [Concomitant]
     Indication: CARDIAC DISORDER

REACTIONS (6)
  - INSOMNIA [None]
  - DIARRHOEA [None]
  - EATING DISORDER [None]
  - SOCIAL PHOBIA [None]
  - COMMUNICATION DISORDER [None]
  - DRUG DOSE OMISSION [None]
